FAERS Safety Report 14510217 (Version 2)
Quarter: 2018Q1

REPORT INFORMATION
  Report Type: Spontaneous
  Country: US (occurrence: US)
  Receive Date: 20180209
  Receipt Date: 20180221
  Transmission Date: 20180509
  Serious: No
  Sender: FDA-Public Use
  Company Number: US-GLAXOSMITHKLINE-US2018016852

PATIENT
  Age: 23 Year
  Sex: Male

DRUGS (1)
  1. ABREVA [Suspect]
     Active Substance: DOCOSANOL
     Indication: ORAL HERPES
     Dosage: UNK
     Dates: start: 20180128

REACTIONS (7)
  - Application site pain [Unknown]
  - Application site swelling [Recovering/Resolving]
  - Wrong technique in product usage process [Unknown]
  - Oral herpes [Unknown]
  - Application site scab [Unknown]
  - Condition aggravated [Unknown]
  - Application site pustules [Recovering/Resolving]

NARRATIVE: CASE EVENT DATE: 20180128
